FAERS Safety Report 22646115 (Version 1)
Quarter: 2023Q2

REPORT INFORMATION
  Report Type: Spontaneous
  Country: US (occurrence: None)
  Receive Date: 20230626
  Receipt Date: 20230626
  Transmission Date: 20230721
  Serious: Yes (Life-Threatening, Hospitalization, Disabling)
  Sender: FDA-Public Use
  Company Number: None

PATIENT
  Age: 94 Year
  Sex: Female
  Weight: 67.5 kg

DRUGS (7)
  1. GEMTESA [Suspect]
     Active Substance: VIBEGRON
     Indication: Hypertonic bladder
     Dosage: OTHER QUANTITY : 7 TABLET(S);?FREQUENCY : DAILY;?
     Route: 048
     Dates: start: 20230524, end: 20230619
  2. LISINOPRIL [Concomitant]
     Active Substance: LISINOPRIL
  3. METROPOLIS [Concomitant]
  4. GLIPIZIDE [Concomitant]
     Active Substance: GLIPIZIDE
  5. BUDESONIDE [Concomitant]
     Active Substance: BUDESONIDE
  6. INSULIN NOS [Concomitant]
     Active Substance: INSULIN NOS
  7. CRANBERRY PILLS [Concomitant]

REACTIONS (3)
  - Urinary retention [None]
  - Quality of life decreased [None]
  - Asthenia [None]

NARRATIVE: CASE EVENT DATE: 20230620
